FAERS Safety Report 16984687 (Version 2)
Quarter: 2020Q1

REPORT INFORMATION
  Report Type: Spontaneous
  Country: DE (occurrence: DE)
  Receive Date: 20191101
  Receipt Date: 20200311
  Transmission Date: 20200409
  Serious: Yes (Hospitalization, Other)
  Sender: FDA-Public Use
  Company Number: DE-AMGEN-DEUSP2019177232

PATIENT
  Age: 47 Year
  Sex: Male

DRUGS (16)
  1. BRILIQUE [Concomitant]
     Active Substance: TICAGRELOR
     Indication: CORONARY ARTERY DISEASE
     Dosage: 90 MILLIGRAM
     Route: 048
  2. PREGABADOR [Concomitant]
     Active Substance: PREGABALIN
     Dosage: 25 MILLIGRAM
     Route: 048
  3. MACROGOL [Concomitant]
     Active Substance: POLYETHYLENE GLYCOLS
     Dosage: UNK
     Route: 048
  4. OXYCODON COMP [Concomitant]
     Dosage: 5MG / 2.5 MG
  5. ESOMEPRAZOL [ESOMEPRAZOLE] [Concomitant]
     Active Substance: ESOMEPRAZOLE
     Dosage: 40 MILLIGRAM
  6. ATOZET [Concomitant]
     Active Substance: ATORVASTATIN CALCIUM\EZETIMIBE
     Indication: HYPERLIPIDAEMIA
     Dosage: 10 MG/40 MG
     Route: 048
  7. PARSABIV [Suspect]
     Active Substance: ETELCALCETIDE HYDROCHLORIDE
     Indication: HYPERPARATHYROIDISM SECONDARY
     Dosage: 15 MILLIGRAM, QWK
     Route: 042
     Dates: start: 201901, end: 201905
  8. METOPROLOL SUCCINATE. [Concomitant]
     Active Substance: METOPROLOL SUCCINATE
     Indication: HYPERTENSION
     Dosage: 95 MILLIGRAM
     Route: 048
  9. SANDIMMUN [Concomitant]
     Active Substance: CYCLOSPORINE
     Indication: RENAL TRANSPLANT
     Dosage: 50 MILLIGRAM
     Route: 048
  10. ASPIRIN. [Concomitant]
     Active Substance: ASPIRIN
     Indication: CORONARY ARTERY DISEASE
     Dosage: 100 MILLIGRAM
     Route: 048
  11. NOVORAPID [Concomitant]
     Active Substance: INSULIN ASPART
     Dosage: UNK
  12. LEVEMIR [Concomitant]
     Active Substance: INSULIN DETEMIR
     Dosage: UNK
  13. NEPHROTRANS [Concomitant]
     Active Substance: SODIUM BICARBONATE
     Dosage: 840 MILLIGRAM
     Route: 048
  14. L-THYROX [Concomitant]
     Active Substance: LEVOTHYROXINE SODIUM
     Indication: HYPOTHYROIDISM
     Dosage: 25 MICROGRAM
     Route: 048
  15. DREISAVIT N [Concomitant]
     Dosage: UNK
     Route: 048
  16. CANDESARTAN. [Concomitant]
     Active Substance: CANDESARTAN
     Indication: HYPERTENSION
     Dosage: 32 MILLIGRAM
     Route: 048

REACTIONS (1)
  - Calciphylaxis [Recovering/Resolving]

NARRATIVE: CASE EVENT DATE: 20190814
